FAERS Safety Report 11116416 (Version 3)
Quarter: 2015Q3

REPORT INFORMATION
  Report Type: Spontaneous
  Country: US (occurrence: US)
  Receive Date: 20150515
  Receipt Date: 20150709
  Transmission Date: 20151125
  Serious: Yes (Hospitalization, Other)
  Sender: FDA-Public Use
  Company Number: US-009507513-1505USA005787

PATIENT
  Age: 66 Year
  Sex: Female

DRUGS (3)
  1. ZOSTAVAX [Interacting]
     Active Substance: VARICELLA-ZOSTER VIRUS STRAIN OKA/MERCK LIVE ANTIGEN
     Indication: PROPHYLAXIS
  2. METHYLPREDNISOLONE SODIUM SUCCINATE. [Suspect]
     Active Substance: METHYLPREDNISOLONE SODIUM SUCCINATE
     Indication: PROGRESSIVE RELAPSING MULTIPLE SCLEROSIS
     Dosage: 5-DAY COURSE OF HIGH-DOSE IV
     Route: 042
  3. FINGOLIMOD HYDROCHLORIDE [Interacting]
     Active Substance: FINGOLIMOD HYDROCHLORIDE

REACTIONS (4)
  - Drug interaction [Unknown]
  - Vaccination failure [Unknown]
  - Uveitis [Recovered/Resolved]
  - Herpes zoster meningoencephalitis [Recovered/Resolved]
